FAERS Safety Report 6845184-0 (Version None)
Quarter: 2010Q3

REPORT INFORMATION
  Report Type: 
  Country: None (occurrence: None)
  Receive Date: 20100715
  Receipt Date: 20070810
  Transmission Date: 20110219
  Serious: No
  Sender: FDA-Public Use
  Company Number: US-PFIZER INC-2007069723

PATIENT
  Sex: Female
  Weight: 49.9 kg

DRUGS (8)
  1. CHANTIX [Suspect]
     Indication: SMOKING CESSATION THERAPY
     Dates: start: 20070802
  2. NEXIUM [Concomitant]
  3. CYMBALTA [Concomitant]
  4. HYDROCHLOROTHIAZIDE [Concomitant]
  5. FLEXERIL [Concomitant]
  6. NAPROXEN [Concomitant]
  7. PROCARDIA XL [Concomitant]
  8. HYDROCODONE [Concomitant]

REACTIONS (1)
  - ABNORMAL DREAMS [None]
